FAERS Safety Report 4341030-8 (Version None)
Quarter: 2004Q2

REPORT INFORMATION
  Report Type: 
  Country: None (occurrence: None)
  Receive Date: 20040413
  Receipt Date: 20040329
  Transmission Date: 20050107
  Serious: Yes (Other)
  Sender: FDA-Public Use
  Company Number: 2004EU000429

PATIENT
  Age: 5 Year
  Sex: Female

DRUGS (1)
  1. PROTOPIC [Suspect]
     Indication: DERMATITIS ATOPIC
     Dosage: D, TOPICAL
     Route: 061
     Dates: start: 20030101

REACTIONS (3)
  - ABDOMINAL PAIN [None]
  - HEPATIC ADENOMA [None]
  - LIVER DISORDER [None]
